FAERS Safety Report 5002213-7 (Version None)
Quarter: 2006Q2

REPORT INFORMATION
  Report Type: 
  Country: None (occurrence: None)
  Receive Date: 20060511
  Receipt Date: 20060511
  Transmission Date: 20061013
  Serious: Yes (Hospitalization)
  Sender: FDA-Public Use
  Company Number: None

PATIENT
  Age: 70 Year
  Sex: Male

DRUGS (16)
  1. GLYBURIDE AND METFORMIN HCL [Suspect]
     Indication: DIABETES MELLITUS
     Dosage: 2 TABS PO BID
     Route: 048
     Dates: start: 20050309, end: 20060317
  2. ACARBOSE [Suspect]
     Indication: DIABETES MELLITUS
     Dosage: 1 PO BID
     Route: 048
     Dates: start: 20051125, end: 20060317
  3. LORATADINE [Concomitant]
  4. GLYBURIDE 5MG/METFORMIN [Concomitant]
  5. ACARBOSE [Concomitant]
  6. FUROSEMIDE [Concomitant]
  7. AMITRIPTYLINE HCL [Concomitant]
  8. SIMVASTATIN [Concomitant]
  9. FELODIPINE [Concomitant]
  10. VALSARTAN [Concomitant]
  11. IBUPROFEN [Concomitant]
  12. TRAMADOL HCL [Concomitant]
  13. ASPIRIN [Concomitant]
  14. COLESTIPOL HCL [Concomitant]
  15. ALBUTEROL [Concomitant]
  16. IPRATROPIUM NEBS [Concomitant]

REACTIONS (5)
  - AGITATION [None]
  - BLOOD GLUCOSE DECREASED [None]
  - CONFUSIONAL STATE [None]
  - DEHYDRATION [None]
  - RENAL FAILURE [None]
